FAERS Safety Report 25140928 (Version 1)
Quarter: 2025Q1

REPORT INFORMATION
  Report Type: Spontaneous
  Country: US (occurrence: None)
  Receive Date: 20250330
  Receipt Date: 20250330
  Transmission Date: 20250409
  Serious: Yes (Disabling)
  Sender: FDA-CTU
  Company Number: None

PATIENT
  Age: 56 Year
  Sex: Female

DRUGS (1)
  1. TIRZEPATIDE [Suspect]
     Active Substance: TIRZEPATIDE
     Dates: start: 20240301, end: 20250330

REACTIONS (4)
  - Hypothyroidism [None]
  - Urine output fluctuation [None]
  - Hunger [None]
  - Condition aggravated [None]

NARRATIVE: CASE EVENT DATE: 20240301
